FAERS Safety Report 12679759 (Version 2)
Quarter: 2016Q3

REPORT INFORMATION
  Report Type: Report from Study
  Country: CN (occurrence: CN)
  Receive Date: 20160824
  Receipt Date: 20160927
  Transmission Date: 20161109
  Serious: Yes (Other)
  Sender: FDA-Public Use
  Company Number: CN-ROCHE-1669452

PATIENT
  Age: 52 Year
  Sex: Male
  Weight: 74 kg

DRUGS (1)
  1. AVASTIN [Suspect]
     Active Substance: BEVACIZUMAB
     Indication: RECTAL CANCER METASTATIC
     Route: 041
     Dates: start: 20140903, end: 20160705

REACTIONS (7)
  - Hepatic lesion [Unknown]
  - Alanine aminotransferase increased [Recovered/Resolved]
  - Discomfort [Unknown]
  - Cough [Unknown]
  - White blood cell count decreased [Recovered/Resolved]
  - High frequency ablation [Unknown]
  - Metastases to liver [Unknown]

NARRATIVE: CASE EVENT DATE: 20151111
